FAERS Safety Report 9999478 (Version 1)
Quarter: 2014Q1

REPORT INFORMATION
  Report Type: Spontaneous
  Country: US (occurrence: None)
  Receive Date: 20140311
  Receipt Date: 20140311
  Transmission Date: 20141002
  Serious: Yes (Hospitalization)
  Sender: FDA-Public Use
  Company Number: None

PATIENT
  Age: 64 Year
  Sex: Female
  Weight: 61.9 kg

DRUGS (3)
  1. BEVACIZUMAB (RHUMAB VEGF) (704865) [Suspect]
  2. CARBOPLATIN [Suspect]
  3. PACLITAXEL (TAXOL) [Suspect]

REACTIONS (11)
  - Dyspnoea [None]
  - Cough [None]
  - Chest pain [None]
  - Sinus tachycardia [None]
  - Lung consolidation [None]
  - Hypertension [None]
  - Atrial fibrillation [None]
  - Atrial flutter [None]
  - Neutropenia [None]
  - Hypoxia [None]
  - Respiratory failure [None]
